FAERS Safety Report 8116456-7 (Version None)
Quarter: 2012Q1

REPORT INFORMATION
  Report Type: 
  Country: None (occurrence: None)
  Receive Date: 20120124
  Receipt Date: 20120106
  Transmission Date: 20120608
  Serious: Yes (Hospitalization, Other)
  Sender: FDA-Public Use
  Company Number: WSDF_00723

PATIENT
  Sex: Female
  Weight: 127.9144 kg

DRUGS (7)
  1. SYNTHROID [Concomitant]
  2. WINRHO SDF LIQUID [Suspect]
  3. XELODA [Concomitant]
  4. LOMOTIL [Concomitant]
  5. WINRHO SDF LIQUID [Suspect]
  6. WINRHO SDF LIQUID [Suspect]
     Indication: IDIOPATHIC THROMBOCYTOPENIC PURPURA
     Dosage: (60.5 UG/KG 1X/MONTH INTRAVENOUS (NOT OTHERWISE SPECIFIED)), (INTRANVEOUS (NOT OTHERWISE SPECIFIED),
     Route: 042
     Dates: start: 20080305, end: 20080305
  7. AVASTIN [Concomitant]

REACTIONS (20)
  - BLOOD LACTATE DEHYDROGENASE INCREASED [None]
  - RETICULOCYTE COUNT INCREASED [None]
  - NEOPLASM PROGRESSION [None]
  - DIARRHOEA [None]
  - SPLENOMEGALY [None]
  - COLORECTAL CANCER METASTATIC [None]
  - VOMITING [None]
  - PYREXIA [None]
  - LIVER FUNCTION TEST ABNORMAL [None]
  - NAUSEA [None]
  - DEHYDRATION [None]
  - DISSEMINATED INTRAVASCULAR COAGULATION [None]
  - JAUNDICE [None]
  - TRANSFUSION RELATED COMPLICATION [None]
  - HYPERBILIRUBINAEMIA [None]
  - HAEMOLYTIC ANAEMIA [None]
  - CHROMATURIA [None]
  - COAGULOPATHY [None]
  - INTERNATIONAL NORMALISED RATIO INCREASED [None]
  - DRUG TOLERANCE [None]
